FAERS Safety Report 14870824 (Version 2)
Quarter: 2018Q2

REPORT INFORMATION
  Report Type: Report from Study
  Country: ZA (occurrence: ZA)
  Receive Date: 20180509
  Receipt Date: 20180509
  Transmission Date: 20180711
  Serious: Yes (Death, Hospitalization)
  Sender: FDA-Public Use
  Company Number: ZA-VIFOR (INTERNATIONAL) INC.-VIT-2018-04173

PATIENT
  Age: 64 Year
  Sex: Male

DRUGS (6)
  1. MIRCERA [Suspect]
     Active Substance: METHOXY POLYETHYLENE GLYCOL-EPOETIN BETA
     Indication: PRODUCT USED FOR UNKNOWN INDICATION
     Route: 065
     Dates: start: 20110601
  2. VENOFER [Concomitant]
     Active Substance: IRON SUCROSE
  3. MIRCERA [Suspect]
     Active Substance: METHOXY POLYETHYLENE GLYCOL-EPOETIN BETA
     Route: 065
     Dates: start: 20111020
  4. EPOETIN BETA [Suspect]
     Active Substance: ERYTHROPOIETIN
     Route: 065
     Dates: start: 20101102
  5. EPOETIN BETA [Suspect]
     Active Substance: ERYTHROPOIETIN
     Indication: ANAEMIA
     Route: 065
     Dates: start: 20091103
  6. MIRCERA [Suspect]
     Active Substance: METHOXY POLYETHYLENE GLYCOL-EPOETIN BETA
     Route: 065
     Dates: start: 20120815

REACTIONS (2)
  - Intracranial pressure increased [Fatal]
  - Cerebral haemorrhage [Unknown]

NARRATIVE: CASE EVENT DATE: 20121115
